FAERS Safety Report 4577228-3 (Version None)
Quarter: 2005Q1

REPORT INFORMATION
  Report Type: 
  Country: None (occurrence: None)
  Receive Date: 20050209
  Receipt Date: 20050126
  Transmission Date: 20050727
  Serious: Yes (Death)
  Sender: FDA-Public Use
  Company Number: 2004AL000722

PATIENT
  Age: 50 Year
  Sex: Female

DRUGS (5)
  1. THEOPHYLLINE ELIXIR LIQUID [Suspect]
     Dosage: PO
     Route: 048
  2. PROPOXYPHENE NAPSYLATE AND ACETAMINOPHEN TABLETS USP, 100 MG/650 MG (P [Suspect]
     Dosage: PO
     Route: 048
  3. ZOLPIDEM TARTRATE [Suspect]
     Dosage: PO
     Route: 048
  4. METFORMIN HYDROCHLORIDE [Suspect]
     Dosage: PO
     Route: 048
  5. ROSIGLITAZONE MALEATE [Suspect]
     Dosage: PO
     Route: 048

REACTIONS (9)
  - ACIDOSIS [None]
  - ANURIA [None]
  - COMPLETED SUICIDE [None]
  - DEPRESSED LEVEL OF CONSCIOUSNESS [None]
  - HYPOTENSION [None]
  - INTENTIONAL MISUSE [None]
  - PUPIL FIXED [None]
  - RENAL FAILURE [None]
  - UNRESPONSIVE TO PAIN STIMULI [None]
